FAERS Safety Report 9391706 (Version 1)
Quarter: 2013Q3

REPORT INFORMATION
  Report Type: Report from Study
  Country: DE (occurrence: DE)
  Receive Date: 20130709
  Receipt Date: 20130709
  Transmission Date: 20140515
  Serious: Yes (Death, Hospitalization, Other)
  Sender: FDA-Public Use
  Company Number: DE-GENZYME-THYM-1003896

PATIENT
  Age: 64 Year
  Sex: Male
  Weight: 55.5 kg

DRUGS (21)
  1. THYMOGLOBULINE [Suspect]
     Indication: IMMUNOSUPPRESSION
     Dosage: 600 MG, QD
     Route: 048
     Dates: start: 20110311
  2. TACROLIMUS [Suspect]
     Indication: IMMUNOSUPPRESSION
     Dosage: 9 MG, QD
     Route: 048
     Dates: start: 20110311, end: 20110802
  3. TACROLIMUS [Suspect]
     Dosage: 7 MG, QD
     Route: 048
     Dates: start: 20110802, end: 20110807
  4. TACROLIMUS [Suspect]
     Dosage: 10 MG, QD
     Route: 048
  5. CELLCEPT [Suspect]
     Indication: IMMUNOSUPPRESSION
     Dosage: 1000 MG, BID
     Route: 048
     Dates: start: 20110311
  6. CELLCEPT [Suspect]
     Dosage: 500 MG, BID
     Route: 048
  7. CELLCEPT [Suspect]
     Dosage: 250 MG, BID
     Route: 048
     Dates: end: 20110719
  8. DECORTIN H [Suspect]
     Indication: IMMUNOSUPPRESSION
     Dosage: 25 MG, QD
     Route: 048
     Dates: start: 20110311
  9. COTRIM FORTE EU RHO [Concomitant]
     Indication: PRODUCT USED FOR UNKNOWN INDICATION
     Dosage: 960 MG, QOD
     Route: 065
     Dates: start: 20110312, end: 20110805
  10. VALCYTE [Concomitant]
     Indication: PRODUCT USED FOR UNKNOWN INDICATION
     Dosage: 450 MG, QOD
     Route: 065
     Dates: start: 20110312, end: 20110717
  11. EUNERPAN [Concomitant]
     Indication: PRODUCT USED FOR UNKNOWN INDICATION
     Dosage: 5025 MG, QD
     Route: 065
     Dates: start: 20110508, end: 20110810
  12. NEPHROTRANS [Concomitant]
     Indication: PRODUCT USED FOR UNKNOWN INDICATION
     Dosage: 1500 MG, TID
     Route: 065
     Dates: start: 20110601, end: 20110807
  13. ASA [Concomitant]
     Indication: PRODUCT USED FOR UNKNOWN INDICATION
     Dosage: 100 MG, QD
     Route: 065
     Dates: start: 20110527, end: 20110811
  14. XIPAMIDE [Concomitant]
     Indication: PRODUCT USED FOR UNKNOWN INDICATION
     Dosage: 20 MG, QD
     Route: 065
  15. MARCUMAR [Concomitant]
     Indication: PRODUCT USED FOR UNKNOWN INDICATION
     Dosage: UNK
     Route: 065
  16. PANTOZOL [Concomitant]
     Indication: PRODUCT USED FOR UNKNOWN INDICATION
     Dosage: UNK
     Route: 065
  17. LASIX [Concomitant]
     Indication: PRODUCT USED FOR UNKNOWN INDICATION
     Dosage: 40 MG, QD
     Route: 065
     Dates: start: 20110530, end: 20110623
  18. DILATREND [Concomitant]
     Indication: PRODUCT USED FOR UNKNOWN INDICATION
     Dosage: 25 MG, QD
     Route: 065
     Dates: start: 2011
  19. METRONIDAZOLE [Concomitant]
     Indication: PRODUCT USED FOR UNKNOWN INDICATION
     Dosage: UNK
     Route: 065
  20. MELPERONE [Concomitant]
     Indication: PRODUCT USED FOR UNKNOWN INDICATION
     Dosage: UNK
     Route: 065
  21. AMPHOTERICIN B [Concomitant]
     Indication: ORAL CANDIDIASIS
     Dosage: UNK
     Route: 065

REACTIONS (14)
  - General physical health deterioration [Fatal]
  - Bone marrow failure [Unknown]
  - Vascular procedure complication [Unknown]
  - Pleural effusion [Unknown]
  - Ischaemia [Not Recovered/Not Resolved]
  - Skin ulcer [Unknown]
  - Renal failure [Unknown]
  - Clostridium test positive [Unknown]
  - Atrial fibrillation [Unknown]
  - Escherichia urinary tract infection [Unknown]
  - Sepsis [Fatal]
  - Pneumonia [Fatal]
  - General physical health deterioration [Recovered/Resolved with Sequelae]
  - Thrombocytopenia [Recovered/Resolved with Sequelae]
